FAERS Safety Report 9851359 (Version 2)
Quarter: 2014Q1

REPORT INFORMATION
  Report Type: Spontaneous
  Country: CA (occurrence: CA)
  Receive Date: 20140129
  Receipt Date: 20140206
  Transmission Date: 20141002
  Serious: Yes (Hospitalization, Other)
  Sender: FDA-Public Use
  Company Number: CA-AMGEN-CANSP2014005298

PATIENT
  Age: 54 Year
  Sex: Female

DRUGS (3)
  1. ENBREL [Suspect]
     Indication: RHEUMATOID ARTHRITIS
     Dosage: 50 MG, UNK
     Route: 065
     Dates: start: 20081118, end: 20131227
  2. METHOTREXATE [Concomitant]
     Dosage: UNK
     Dates: end: 20131226
  3. COUMADIN                           /00014802/ [Concomitant]
     Dosage: UNK

REACTIONS (3)
  - Breast cancer [Not Recovered/Not Resolved]
  - Cardiac valve disease [Not Recovered/Not Resolved]
  - Adverse drug reaction [Not Recovered/Not Resolved]
